FAERS Safety Report 8037090-3 (Version None)
Quarter: 2012Q1

REPORT INFORMATION
  Report Type: 
  Country: None (occurrence: None)
  Receive Date: 20120111
  Receipt Date: 20120106
  Transmission Date: 20120608
  Serious: Yes (Death)
  Sender: FDA-Public Use
  Company Number: US-GLAXOSMITHKLINE-A0960646A

PATIENT
  Age: 85 Year
  Sex: Male

DRUGS (2)
  1. ADVAIR DISKUS 100/50 [Suspect]
     Route: 065
     Dates: start: 20030716, end: 20111225
  2. UNSPECIFIED MEDICATIONS [Concomitant]

REACTIONS (2)
  - MALAISE [None]
  - DEATH [None]
